FAERS Safety Report 19429383 (Version 3)
Quarter: 2022Q1

REPORT INFORMATION
  Report Type: Report from Study
  Country: JP (occurrence: JP)
  Receive Date: 20210617
  Receipt Date: 20220328
  Transmission Date: 20220424
  Serious: No
  Sender: FDA-Public Use
  Company Number: JP-MERCK HEALTHCARE KGAA-9244164

PATIENT
  Age: 86 Year
  Sex: Male

DRUGS (1)
  1. TEPMETKO [Suspect]
     Active Substance: TEPOTINIB HYDROCHLORIDE
     Indication: Lung neoplasm malignant
     Route: 048
     Dates: start: 20201119, end: 20201203

REACTIONS (2)
  - Pulmonary congestion [Recovered/Resolved]
  - Fluid retention [Recovered/Resolved]

NARRATIVE: CASE EVENT DATE: 20201203
